FAERS Safety Report 6646933-7 (Version None)
Quarter: 2010Q1

REPORT INFORMATION
  Report Type: 
  Country: None (occurrence: None)
  Receive Date: 20100323
  Receipt Date: 20100317
  Transmission Date: 20100710
  Serious: Yes (Other)
  Sender: FDA-Public Use
  Company Number: US-JNJFOC-20100305701

PATIENT

DRUGS (2)
  1. TYLENOL-500 [Suspect]
     Indication: PAIN
  2. TYLENOL-500 [Suspect]
     Indication: MYALGIA

REACTIONS (1)
  - DEAFNESS [None]
